FAERS Safety Report 20976309 (Version 1)
Quarter: 2022Q2

REPORT INFORMATION
  Report Type: Spontaneous
  Country: US (occurrence: US)
  Receive Date: 20220617
  Receipt Date: 20220617
  Transmission Date: 20220720
  Serious: Yes (Other)
  Sender: FDA-Public Use
  Company Number: US-PFIZER INC-PV202200004203

PATIENT
  Age: 32 Year
  Sex: Female

DRUGS (2)
  1. EUCRISA [Suspect]
     Active Substance: CRISABOROLE
     Dosage: UNK
  2. CIBINQO [Suspect]
     Active Substance: ABROCITINIB
     Dosage: UNK

REACTIONS (2)
  - Dermatitis atopic [Unknown]
  - Pruritus [Unknown]
